FAERS Safety Report 21972283 (Version 1)
Quarter: 2023Q1

REPORT INFORMATION
  Report Type: Spontaneous
  Country: US (occurrence: None)
  Receive Date: 20230207
  Receipt Date: 20230207
  Transmission Date: 20230417
  Serious: Yes (Hospitalization, Other)
  Sender: FDA-Public Use
  Company Number: None

PATIENT
  Age: 60 Year
  Sex: Female
  Weight: 50.2 kg

DRUGS (2)
  1. PEMBROLIZUMAB [Suspect]
     Active Substance: PEMBROLIZUMAB
     Indication: Clear cell renal cell carcinoma
     Dosage: OTHER FREQUENCY : EVERY 3 WEEKS;?
     Route: 042
     Dates: start: 20220818
  2. AXITINIB [Concomitant]
     Active Substance: AXITINIB

REACTIONS (4)
  - Guillain-Barre syndrome [None]
  - Miller Fisher syndrome [None]
  - Myelitis transverse [None]
  - Headache [None]

NARRATIVE: CASE EVENT DATE: 20221109
